FAERS Safety Report 6507722-7 (Version None)
Quarter: 2009Q4

REPORT INFORMATION
  Report Type: 
  Country: None (occurrence: None)
  Receive Date: 20091221
  Receipt Date: 20091216
  Transmission Date: 20100525
  Serious: Yes (Other)
  Sender: FDA-Public Use
  Company Number: HQWYE373017MAY06

PATIENT
  Age: 60 Year
  Sex: Female

DRUGS (3)
  1. PREMARIN [Suspect]
     Indication: OESTROGEN REPLACEMENT THERAPY
  2. ESTRATEST H.S. [Suspect]
     Indication: HORMONE REPLACEMENT THERAPY
  3. ESTRATEST [Suspect]
     Indication: HORMONE REPLACEMENT THERAPY

REACTIONS (4)
  - BONE NEOPLASM MALIGNANT [None]
  - BREAST CANCER [None]
  - CEREBROVASCULAR ACCIDENT [None]
  - MYOCARDIAL INFARCTION [None]
